FAERS Safety Report 7646595-6 (Version None)
Quarter: 2011Q3

REPORT INFORMATION
  Report Type: 
  Country: None (occurrence: None)
  Receive Date: 20110801
  Receipt Date: 20110721
  Transmission Date: 20111222
  Serious: Yes (Hospitalization, Other)
  Sender: FDA-Public Use
  Company Number: US-BAYER-201031232NA

PATIENT
  Age: 26 Year
  Sex: Female
  Weight: 54 kg

DRUGS (5)
  1. DROSPIRENONE AND ETHINYL ESTRADIOL [Suspect]
     Dosage: UNK
     Dates: start: 20060101
  2. YASMIN [Suspect]
     Dosage: UNK
     Dates: start: 20060101
  3. ADVIL LIQUI-GELS [Concomitant]
     Indication: HEADACHE
  4. MOTRIN [Concomitant]
     Indication: HEADACHE
  5. ZOLPIDEM [Concomitant]
     Dosage: 10 MG, UNK
     Dates: start: 20080701

REACTIONS (4)
  - GALLBLADDER DISORDER [None]
  - CHOLELITHIASIS [None]
  - PAIN [None]
  - CHOLECYSTITIS CHRONIC [None]
